FAERS Safety Report 8927598 (Version 2)
Quarter: 2013Q1

REPORT INFORMATION
  Report Type: Spontaneous
  Country: US (occurrence: US)
  Receive Date: 20121127
  Receipt Date: 20130107
  Transmission Date: 20140127
  Serious: Yes (Hospitalization)
  Sender: FDA-Public Use
  Company Number: US-PFIZER INC-HQWYE156819MAR03

PATIENT
  Age: 72 Year
  Sex: Female
  Weight: 54 kg

DRUGS (3)
  1. PREMPRO [Suspect]
     Indication: MENOPAUSE
     Dosage: 0.625MG/ 2.5MG DAILY
     Route: 048
     Dates: start: 2000
  2. BLACK COHOSH [Suspect]
     Indication: HOT FLUSH
     Dosage: 1 DF, 1X/DAY
     Route: 048
  3. BENAZEPRIL [Concomitant]
     Indication: HYPERTENSION
     Dosage: 5 MG, 1X/DAY

REACTIONS (5)
  - Breast mass [Recovered/Resolved]
  - Sleep disorder [Unknown]
  - Mood altered [Unknown]
  - Hot flush [Not Recovered/Not Resolved]
  - Hyperhidrosis [Unknown]
